FAERS Safety Report 23714948 (Version 4)
Quarter: 2024Q3

REPORT INFORMATION
  Report Type: Report from Study
  Country: US (occurrence: US)
  Receive Date: 20240406
  Receipt Date: 20240814
  Transmission Date: 20241017
  Serious: Yes (Other)
  Sender: ABBVIE
  Company Number: US-ABBVIE-5623507

PATIENT
  Sex: Male

DRUGS (3)
  1. SKYRIZI [Suspect]
     Active Substance: RISANKIZUMAB-RZAA
     Indication: Crohn^s disease
     Dosage: DISCONTINUED IN NOV 2023
     Route: 058
     Dates: start: 20231115
  2. SKYRIZI [Suspect]
     Active Substance: RISANKIZUMAB-RZAA
     Route: 058
     Dates: start: 20231120
  3. SKYRIZI [Suspect]
     Active Substance: RISANKIZUMAB-RZAA
     Route: 058
     Dates: start: 20240315

REACTIONS (9)
  - Prostate cancer [Unknown]
  - Vein rupture [Unknown]
  - Blindness unilateral [Unknown]
  - Cardiac failure congestive [Unknown]
  - Ligament rupture [Recovering/Resolving]
  - Visual impairment [Recovering/Resolving]
  - Unevaluable event [Unknown]
  - Crohn^s disease [Recovering/Resolving]
  - Pain [Recovering/Resolving]

NARRATIVE: CASE EVENT DATE: 20240101
